FAERS Safety Report 5872508-3 (Version None)
Quarter: 2008Q3

REPORT INFORMATION
  Report Type: 
  Country: None (occurrence: None)
  Receive Date: 20080905
  Receipt Date: 20080828
  Transmission Date: 20090109
  Serious: Yes (Other)
  Sender: FDA-Public Use
  Company Number: DE-JNJCH-2008022519

PATIENT
  Age: 78 Year
  Sex: Female

DRUGS (1)
  1. REGAINE 2% [Suspect]
     Indication: ALOPECIA
     Dosage: TEXT:1 ML TWICE DAILY (BID)
     Route: 061

REACTIONS (5)
  - ALOPECIA [None]
  - BLOOD IRON DECREASED [None]
  - CATARACT [None]
  - HAIR COLOUR CHANGES [None]
  - HAIR TEXTURE ABNORMAL [None]
